FAERS Safety Report 22586256 (Version 2)
Quarter: 2023Q2

REPORT INFORMATION
  Report Type: Other
  Country: CA (occurrence: None)
  Receive Date: 20230611
  Receipt Date: 20230615
  Transmission Date: 20230722
  Serious: Yes (Other)
  Sender: FDA-Public Use
  Company Number: CA-ROCHE-3363109

PATIENT
  Sex: Female
  Weight: 44.2 kg

DRUGS (2)
  1. GLOFITAMAB [Suspect]
     Active Substance: GLOFITAMAB
     Indication: Diffuse large B-cell lymphoma
     Dosage: CYCLE 1 DAY 8?CYCLE 1 DAY 15 17/MAY2023
     Route: 042
     Dates: start: 20230510, end: 20230524
  2. OBINUTUZUMAB [Suspect]
     Active Substance: OBINUTUZUMAB
     Indication: Diffuse large B-cell lymphoma
     Route: 042
     Dates: start: 20230503

REACTIONS (2)
  - Drug ineffective [Unknown]
  - No adverse event [Unknown]
